FAERS Safety Report 4598820-6 (Version None)
Quarter: 2005Q1

REPORT INFORMATION
  Report Type: 
  Country: None (occurrence: None)
  Receive Date: 20050301
  Receipt Date: 20050216
  Transmission Date: 20050727
  Serious: Yes (Other)
  Sender: FDA-Public Use
  Company Number: 2005010215

PATIENT
  Sex: Female
  Weight: 90.7194 kg

DRUGS (4)
  1. TIKOSYN [Suspect]
     Indication: ATRIAL FIBRILLATION
     Dosage: 1000 MG (500 MG, Q12 INTERVAL: EVERY DAY), ORAL
     Route: 048
     Dates: start: 20030501
  2. ASPIRIN [Concomitant]
  3. AMLODIPINE BESYLATE [Concomitant]
  4. WARFARIN SODIUM [Concomitant]

REACTIONS (3)
  - BREAST CANCER FEMALE [None]
  - LYMPHOMA [None]
  - NAUSEA [None]
